FAERS Safety Report 6711862-7 (Version None)
Quarter: 2010Q2

REPORT INFORMATION
  Report Type: 
  Country: None (occurrence: None)
  Receive Date: 20100505
  Receipt Date: 20100423
  Transmission Date: 20101027
  Serious: No
  Sender: FDA-Public Use
  Company Number: US-B.I. PHARMACEUTICALS,INC./RIDGEFIELD-2010-BP-00917BP

PATIENT
  Age: 62 Year
  Sex: Female
  Weight: 56.25 kg

DRUGS (6)
  1. AGGRENOX [Suspect]
     Indication: CEREBROVASCULAR ACCIDENT
     Dates: start: 20091105
  2. AGGRENOX [Suspect]
     Indication: TRANSIENT ISCHAEMIC ATTACK
  3. THEOPHYLLINE [Concomitant]
     Dosage: 400 MG
  4. LOPID [Concomitant]
     Dosage: 1200 MG
  5. ADVAIR DISKUS 100/50 [Concomitant]
  6. ACTONEL [Concomitant]

REACTIONS (2)
  - HAEMATURIA [None]
  - URINARY TRACT INFECTION [None]
